FAERS Safety Report 20451664 (Version 2)
Quarter: 2022Q1

REPORT INFORMATION
  Report Type: Report from Study
  Country: MX (occurrence: MX)
  Receive Date: 20220209
  Receipt Date: 20220323
  Transmission Date: 20220424
  Serious: Yes (Other)
  Sender: FDA-Public Use
  Company Number: MX-NOVARTISPH-NVSC2022MX027857

PATIENT
  Sex: Female
  Weight: 55 kg

DRUGS (2)
  1. ACLASTA [Suspect]
     Active Substance: ZOLEDRONIC ACID
     Indication: Osteoporosis
     Dosage: UNK
     Route: 065
     Dates: start: 202009
  2. ACLASTA [Suspect]
     Active Substance: ZOLEDRONIC ACID
     Dosage: 1 DOSAGE FORM, Q12MO (EVERY YEAR)
     Route: 042
     Dates: start: 20210815

REACTIONS (8)
  - Gallbladder disorder [Recovered/Resolved]
  - Eye disorder [Not Recovered/Not Resolved]
  - Headache [Recovering/Resolving]
  - Toothache [Not Recovered/Not Resolved]
  - Nausea [Not Recovered/Not Resolved]
  - Somnolence [Not Recovered/Not Resolved]
  - Eye pain [Recovering/Resolving]
  - Neck pain [Recovering/Resolving]
